FAERS Safety Report 11317126 (Version 1)
Quarter: 2015Q3

REPORT INFORMATION
  Report Type: Spontaneous
  Country: US (occurrence: None)
  Receive Date: 20150727
  Receipt Date: 20150727
  Transmission Date: 20151125
  Serious: No
  Sender: FDA-Public Use
  Company Number: None

PATIENT
  Age: 29 Year
  Sex: Female
  Weight: 54.43 kg

DRUGS (2)
  1. IBUPROFEN. [Concomitant]
     Active Substance: IBUPROFEN
  2. AMPHETAMINE [Suspect]
     Active Substance: AMPHETAMINE
     Indication: ATTENTION DEFICIT/HYPERACTIVITY DISORDER
     Dosage: 1 PILL
     Route: 048
     Dates: start: 20150721, end: 20150724

REACTIONS (9)
  - Chills [None]
  - Nausea [None]
  - Drug ineffective [None]
  - Asthenia [None]
  - Fatigue [None]
  - Heart rate increased [None]
  - Product substitution issue [None]
  - Headache [None]
  - Dizziness [None]

NARRATIVE: CASE EVENT DATE: 20150724
